FAERS Safety Report 10194722 (Version 1)
Quarter: 2014Q2

REPORT INFORMATION
  Report Type: Spontaneous
  Country: TR (occurrence: TR)
  Receive Date: 20140526
  Receipt Date: 20140526
  Transmission Date: 20141212
  Serious: Yes (Hospitalization)
  Sender: FDA-Public Use
  Company Number: TR-BRISTOL-MYERS SQUIBB COMPANY-20797643

PATIENT
  Age: 75 Year
  Sex: Male

DRUGS (4)
  1. GLUCOPHAGE TABS 1000 MG [Suspect]
     Indication: DIABETES MELLITUS
     Dates: start: 2012, end: 20140515
  2. CORASPIN [Suspect]
     Indication: ANTIPLATELET THERAPY
     Dates: start: 201312
  3. ATACAND [Suspect]
  4. PANTOPRAZOLE [Suspect]

REACTIONS (1)
  - Haematuria [Not Recovered/Not Resolved]
